FAERS Safety Report 10089174 (Version 1)
Quarter: 2014Q2

REPORT INFORMATION
  Report Type: Spontaneous
  Country: BR (occurrence: BR)
  Receive Date: 20140421
  Receipt Date: 20140421
  Transmission Date: 20141212
  Serious: Yes (Death)
  Sender: FDA-Public Use
  Company Number: BR-SA-2014SA050459

PATIENT
  Age: 76 Year
  Sex: Male

DRUGS (2)
  1. JEVTANA [Suspect]
     Indication: PROSTATE CANCER METASTATIC
     Route: 065
  2. JEVTANA [Suspect]
     Indication: PROSTATE CANCER METASTATIC
     Route: 065

REACTIONS (1)
  - Acute myocardial infarction [Fatal]
